FAERS Safety Report 16278432 (Version 1)
Quarter: 2019Q2

REPORT INFORMATION
  Report Type: Spontaneous
  Country: US (occurrence: US)
  Receive Date: 20190506
  Receipt Date: 20190506
  Transmission Date: 20190711
  Serious: Yes (Death)
  Sender: FDA-Public Use
  Company Number: US-PFIZER INC-2019002075

PATIENT
  Age: 45 Year
  Sex: Female

DRUGS (2)
  1. DOCETAXEL. [Suspect]
     Active Substance: DOCETAXEL
     Indication: BREAST CANCER
     Dosage: UNK, EVERY 3 WEEKS, 16 CYCLES
     Dates: start: 20130829, end: 20141211
  2. TAXOTERE [Suspect]
     Active Substance: DOCETAXEL
     Indication: BREAST CANCER
     Dosage: UNK, EVERY 3 WEEKS, 16 CYCLES
     Dates: start: 20130829, end: 20141211

REACTIONS (7)
  - Hair texture abnormal [Unknown]
  - Hair colour changes [Unknown]
  - Madarosis [Recovered/Resolved]
  - Death [Fatal]
  - Neoplasm recurrence [Unknown]
  - Alopecia [Unknown]
  - Hair disorder [Unknown]

NARRATIVE: CASE EVENT DATE: 201309
